FAERS Safety Report 5162115-2 (Version None)
Quarter: 2006Q4

REPORT INFORMATION
  Report Type: 
  Country: None (occurrence: None)
  Receive Date: 20061121
  Receipt Date: 20061114
  Transmission Date: 20070319
  Serious: Yes (Death)
  Sender: FDA-Public Use
  Company Number: TAP2006Q01881

PATIENT
  Age: 84 Year
  Sex: Male

DRUGS (11)
  1. LUPRON DEPOT-4 [Suspect]
     Indication: PROSTATE CANCER
     Dosage: 30 MG, 1 IN 4 M,
     Dates: start: 20051011, end: 20061013
  2. CASODEX [Concomitant]
  3. VASOTEC (ENALPRIL MALEATE) [Concomitant]
  4. LIPIDIL SUPRA (FENOFIBRATE) [Concomitant]
  5. RIVA-INDAPAMIDE (INDAPAMIDE) [Concomitant]
  6. GLYBURIDE [Concomitant]
  7. CELEBREX [Concomitant]
  8. ASAPHEN EC (ACETYLSALICYLIC ACID) [Concomitant]
  9. FLOMAX [Concomitant]
  10. FLOMAX [Concomitant]
  11. OXYBUTYNIN CHLORIDE [Concomitant]

REACTIONS (8)
  - DECREASED APPETITE [None]
  - DIARRHOEA [None]
  - DYSPEPSIA [None]
  - FAECAL INCONTINENCE [None]
  - FATIGUE [None]
  - MYOCARDIAL INFARCTION [None]
  - PAIN [None]
  - VOMITING [None]
